FAERS Safety Report 8569772-9 (Version None)
Quarter: 2012Q3

REPORT INFORMATION
  Report Type: 
  Country: None (occurrence: None)
  Receive Date: 20120803
  Receipt Date: 20120203
  Transmission Date: 20120928
  Serious: No
  Sender: FDA-Public Use
  Company Number: US-ABBOTT-12P-163-0901528-00

PATIENT
  Sex: Female
  Weight: 61.29 kg

DRUGS (16)
  1. NIASPAN [Suspect]
     Indication: BLOOD CHOLESTEROL ABNORMAL
     Dates: start: 20100101
  2. ASPIRIN [Concomitant]
     Indication: PRODUCT USED FOR UNKNOWN INDICATION
     Dosage: 81 MG PRIOR TO NIASPAN
     Route: 048
  3. VIT D3 [Concomitant]
     Indication: PRODUCT USED FOR UNKNOWN INDICATION
     Route: 048
  4. NIASPAN [Suspect]
     Dosage: 2 TABLETS DAILY
     Route: 048
  5. NIASPAN [Suspect]
     Dosage: DAILY
     Route: 048
  6. ALLEGRA D-ER [Concomitant]
     Indication: PRODUCT USED FOR UNKNOWN INDICATION
     Route: 048
  7. ASCORBIC ACID [Concomitant]
     Indication: PRODUCT USED FOR UNKNOWN INDICATION
     Dosage: 500 TID
     Route: 048
  8. NIASPAN [Suspect]
     Indication: ILL-DEFINED DISORDER
     Dosage: 3 PO DAILY
  9. VITAMIN E [Concomitant]
     Indication: PRODUCT USED FOR UNKNOWN INDICATION
     Route: 048
  10. CALTRATE PLUS-D [Concomitant]
     Indication: PRODUCT USED FOR UNKNOWN INDICATION
     Route: 048
  11. FOLIC ACID [Concomitant]
     Indication: PRODUCT USED FOR UNKNOWN INDICATION
     Route: 048
  12. MELOXICAM [Concomitant]
     Indication: PRODUCT USED FOR UNKNOWN INDICATION
     Route: 048
  13. VITAMIN B-12 [Concomitant]
     Indication: PRODUCT USED FOR UNKNOWN INDICATION
     Route: 048
  14. METHOTREXATE [Concomitant]
     Indication: PRODUCT USED FOR UNKNOWN INDICATION
     Route: 048
  15. METFORMIN HYDROCHLORIDE [Concomitant]
     Indication: PRODUCT USED FOR UNKNOWN INDICATION
     Route: 048
  16. FLUTICASONE FUROATE [Concomitant]
     Indication: PRODUCT USED FOR UNKNOWN INDICATION
     Route: 045

REACTIONS (12)
  - ERYTHEMA [None]
  - HEADACHE [None]
  - ASTHENIA [None]
  - FLUSHING [None]
  - MALAISE [None]
  - ABDOMINAL DISCOMFORT [None]
  - DIZZINESS [None]
  - WEGENER'S GRANULOMATOSIS [None]
  - BURNING SENSATION [None]
  - PRURITUS [None]
  - PYREXIA [None]
  - CYSTITIS [None]
